FAERS Safety Report 9709652 (Version 5)
Quarter: 2014Q1

REPORT INFORMATION
  Report Type: Spontaneous
  Country: US (occurrence: US)
  Receive Date: 20131126
  Receipt Date: 20140106
  Transmission Date: 20141002
  Serious: Yes (Other)
  Sender: FDA-Public Use
  Company Number: PHEH2013US024026

PATIENT
  Sex: Male

DRUGS (5)
  1. TEGRETOL [Suspect]
     Dosage: 200 MG, QD (2 TABLETS OF 100 MG ONCE A DAY)
  2. TEGRETOL [Suspect]
     Dosage: 400 MG AT A DOSE OF TWICE DAILY
  3. TEGRETOL [Suspect]
     Dosage: 200 MG AT A DOSE OF ONCE DAILY
  4. DILANTIN [Suspect]
     Dosage: 2 DF, QD
  5. DIAZEPAM [Concomitant]
     Dosage: 5 MG, PRN

REACTIONS (4)
  - Myoclonic epilepsy [Unknown]
  - Fall [Unknown]
  - Irritable bowel syndrome [Unknown]
  - Underdose [Unknown]
